FAERS Safety Report 25707043 (Version 2)
Quarter: 2025Q3

REPORT INFORMATION
  Report Type: Spontaneous
  Country: US (occurrence: US)
  Receive Date: 20250820
  Receipt Date: 20250829
  Transmission Date: 20251021
  Serious: No
  Sender: GILEAD
  Company Number: US-GILEAD-2025-0724325

PATIENT
  Age: 83 Year
  Sex: Female
  Weight: 68 kg

DRUGS (14)
  1. LIVDELZI [Suspect]
     Active Substance: SELADELPAR LYSINE
     Indication: Primary biliary cholangitis
     Route: 065
  2. URSODIOL [Concomitant]
     Active Substance: URSODIOL
     Dosage: 300 MG, TID
     Dates: start: 20130916, end: 20131217
  3. URSODIOL [Concomitant]
     Active Substance: URSODIOL
     Dates: start: 20131217
  4. URSODIOL [Concomitant]
     Active Substance: URSODIOL
     Dosage: 300 MG, TID
     Dates: start: 20181029, end: 20181105
  5. AMLODIPINE [Concomitant]
     Active Substance: AMLODIPINE BESYLATE
     Dosage: 2.5 MG, QD
     Dates: start: 2016
  6. ATORVASTATIN [Concomitant]
     Active Substance: ATORVASTATIN
     Dosage: 10 MG, QD (QPM)
     Dates: start: 2013
  7. ERGOCALCIFEROL [Concomitant]
     Active Substance: ERGOCALCIFEROL
  8. HYDROXYZINE [Concomitant]
     Active Substance: HYDROXYZINE HYDROCHLORIDE
  9. MAGNESIUM [Concomitant]
     Active Substance: MAGNESIUM
     Dosage: 400 MG, QD
  10. PANTOPRAZOLE [Concomitant]
     Active Substance: PANTOPRAZOLE
     Dosage: 40 MG, QD
     Dates: start: 2023
  11. SERTRALINE [Concomitant]
     Active Substance: SERTRALINE HYDROCHLORIDE
     Dosage: 100 MG, QD
     Dates: start: 2012
  12. SPIRONOLACTONE [Concomitant]
     Active Substance: SPIRONOLACTONE
     Dosage: 12.5 MG, QD
     Dates: start: 2022
  13. VALSARTAN [Concomitant]
     Active Substance: VALSARTAN
     Dosage: 80 MG, BID
     Dates: start: 2009
  14. URSODIOL [Concomitant]
     Active Substance: URSODIOL

REACTIONS (4)
  - Alanine aminotransferase increased [Unknown]
  - Aspartate aminotransferase increased [Unknown]
  - Blood alkaline phosphatase increased [Unknown]
  - Gamma-glutamyltransferase increased [Unknown]

NARRATIVE: CASE EVENT DATE: 20250327
